FAERS Safety Report 4835695-1 (Version None)
Quarter: 2005Q4

REPORT INFORMATION
  Report Type: 
  Country: None (occurrence: None)
  Receive Date: 20051121
  Receipt Date: 20051110
  Transmission Date: 20060501
  Serious: Yes (Other)
  Sender: FDA-Public Use
  Company Number: 2005154741

PATIENT
  Age: 42 Year
  Sex: Female
  Weight: 56.6996 kg

DRUGS (2)
  1. NEURONTIN [Suspect]
     Indication: POST HERPETIC NEURALGIA
     Dates: start: 20040101, end: 20040801
  2. ORTHO-NOVUM [Concomitant]

REACTIONS (2)
  - ANAEMIA [None]
  - COELIAC DISEASE [None]
